FAERS Safety Report 16559038 (Version 1)
Quarter: 2019Q3

REPORT INFORMATION
  Report Type: Spontaneous
  Country: US (occurrence: US)
  Receive Date: 20190710
  Receipt Date: 20190710
  Transmission Date: 20191004
  Serious: Yes (Hospitalization)
  Sender: FDA-Public Use
  Company Number: None

PATIENT
  Age: 71 Year
  Sex: Male

DRUGS (4)
  1. FUROSEMIDE, GABAPENTIN, LORAZEPAM, METHOCARBAM, OXYCODONE [Concomitant]
  2. SENNA, AMLOD/VALSAR, ULTRAM, MAXZIDE, ATENOLOL [Concomitant]
  3. LORBRENA [Suspect]
     Active Substance: LORLATINIB
     Indication: LUNG CARCINOMA CELL TYPE UNSPECIFIED STAGE 0
     Route: 048
     Dates: start: 20190209
  4. SILDENAFIL, ATORVASTATIN, XARELTO, VIT D, COMBIVENT, VENLAFAXINE [Concomitant]

REACTIONS (1)
  - Muscle haemorrhage [None]

NARRATIVE: CASE EVENT DATE: 20190709
